FAERS Safety Report 6224777-8 (Version None)
Quarter: 2009Q2

REPORT INFORMATION
  Report Type: 
  Country: None (occurrence: None)
  Receive Date: 20090612
  Receipt Date: 20090327
  Transmission Date: 20091009
  Serious: No
  Sender: FDA-Public Use
  Company Number: US-ABBOTT-09P-163-0565344-00

PATIENT
  Sex: Male
  Weight: 68.1 kg

DRUGS (4)
  1. HUMIRA [Suspect]
     Indication: COLITIS ULCERATIVE
     Route: 058
     Dates: start: 20090206
  2. ASACOL [Concomitant]
     Indication: COLITIS ULCERATIVE
     Route: 048
  3. PREDNISONE [Concomitant]
     Indication: COLITIS ULCERATIVE
     Route: 048
     Dates: end: 20090301
  4. PREDNISONE [Concomitant]
     Route: 048
     Dates: start: 20090301

REACTIONS (5)
  - ABDOMINAL PAIN [None]
  - DIARRHOEA HAEMORRHAGIC [None]
  - DRUG INEFFECTIVE [None]
  - NON-CARDIAC CHEST PAIN [None]
  - WEIGHT DECREASED [None]
